FAERS Safety Report 12951364 (Version 1)
Quarter: 2020Q3

REPORT INFORMATION
  Report Type: Report from Study
  Country: FR (occurrence: FR)
  Receive Date: 20161117
  Receipt Date: 20161117
  Transmission Date: 20201105
  Serious: Yes (Death, Hospitalization, Other)
  Sender: FDA-Public Use
  Company Number: FR-JNJFOC-20150714570

PATIENT
  Age: 37 Year
  Sex: Male
  Weight: 64 kg

DRUGS (5)
  1. CABOTEGRAVIR [Suspect]
     Active Substance: CABOTEGRAVIR
     Indication: HIV INFECTION
     Route: 048
     Dates: start: 20140718, end: 20141204
  2. TMC278 LA [Suspect]
     Active Substance: RILPIVIRINE
     Indication: HIV INFECTION
     Route: 030
     Dates: start: 20141204, end: 20150623
  3. CABOTEGRAVIR [Suspect]
     Active Substance: CABOTEGRAVIR
     Indication: HIV INFECTION
     Route: 030
     Dates: start: 20141204, end: 20141204
  4. CABOTEGRAVIR [Suspect]
     Active Substance: CABOTEGRAVIR
     Indication: HIV INFECTION
     Route: 030
     Dates: start: 20141230, end: 20150623
  5. RILPIVIRINE [Suspect]
     Active Substance: RILPIVIRINE
     Indication: HIV INFECTION
     Route: 048
     Dates: start: 20141107, end: 20141204

REACTIONS (9)
  - Chest X-ray abnormal [None]
  - Toxicity to various agents [None]
  - Blood pressure abnormal [None]
  - Pneumonia aspiration [None]
  - Epilepsy [Fatal]
  - Hypoxia [None]
  - Intracranial pressure increased [None]
  - Brain oedema [None]
  - Brain stem syndrome [None]

NARRATIVE: CASE EVENT DATE: 20150702
